FAERS Safety Report 10149695 (Version 1)
Quarter: 2014Q2

REPORT INFORMATION
  Report Type: Spontaneous
  Country: DK (occurrence: DK)
  Receive Date: 20140502
  Receipt Date: 20140502
  Transmission Date: 20141212
  Serious: Yes (Life-Threatening, Hospitalization)
  Sender: FDA-Public Use
  Company Number: DK-JNJFOC-20140420444

PATIENT
  Age: 93 Year
  Sex: Male

DRUGS (13)
  1. XARELTO [Suspect]
     Indication: CEREBROVASCULAR ACCIDENT PROPHYLAXIS
     Route: 048
     Dates: start: 20140331
  2. XARELTO [Suspect]
     Indication: ATRIAL FIBRILLATION
     Route: 048
  3. XARELTO [Suspect]
     Indication: ATRIAL FIBRILLATION
     Route: 048
     Dates: start: 20140331
  4. MORPHINE HYDROCHLORIDE [Concomitant]
     Route: 065
  5. NITROLINGUAL [Concomitant]
     Route: 065
  6. CALCIUM [Concomitant]
     Route: 065
  7. PARACETAMOL [Concomitant]
     Route: 065
  8. SERETIDE [Concomitant]
     Route: 065
  9. SPIRIVA [Concomitant]
     Route: 065
  10. VENTOLIN [Concomitant]
     Route: 065
  11. MAGNYL [Concomitant]
     Route: 065
  12. PANTOPRAZOLE [Concomitant]
     Route: 065
  13. XARELTO [Suspect]
     Indication: CEREBROVASCULAR ACCIDENT PROPHYLAXIS
     Route: 048

REACTIONS (3)
  - Accidental overdose [Recovered/Resolved]
  - Drug dispensing error [Recovered/Resolved]
  - Anaemia [Recovering/Resolving]
